FAERS Safety Report 9269487 (Version 1)
Quarter: 2013Q2

REPORT INFORMATION
  Report Type: Spontaneous
  Country: US (occurrence: US)
  Receive Date: 20130503
  Receipt Date: 20130503
  Transmission Date: 20140414
  Serious: Yes (Other)
  Sender: FDA-Public Use
  Company Number: US-PFIZER INC-2013136829

PATIENT
  Sex: 0

DRUGS (2)
  1. IRINOTECAN HCL [Suspect]
  2. AVASTIN [Suspect]

REACTIONS (1)
  - Gastric haemorrhage [Unknown]
